FAERS Safety Report 5150968-3 (Version None)
Quarter: 2006Q4

REPORT INFORMATION
  Report Type: 
  Country: None (occurrence: None)
  Receive Date: 20061115
  Receipt Date: 20051107
  Transmission Date: 20070319
  Serious: Yes (Other)
  Sender: FDA-Public Use
  Company Number: GB-ABBOTT-05P-167-0316824-00

PATIENT
  Sex: Female
  Weight: 69.4 kg

DRUGS (1)
  1. REDUCTIL 10MG [Suspect]
     Indication: WEIGHT CONTROL
     Route: 048

REACTIONS (2)
  - ABORTION INDUCED [None]
  - DRUG INEFFECTIVE [None]
